FAERS Safety Report 9799351 (Version 1)
Quarter: 2014Q1

REPORT INFORMATION
  Report Type: Spontaneous
  Country: US (occurrence: None)
  Receive Date: 20140103
  Receipt Date: 20140103
  Transmission Date: 20141002
  Serious: Yes (Death)
  Sender: FDA-Public Use
  Company Number: None

PATIENT
  Age: 87 Year
  Sex: Female
  Weight: 61 kg

DRUGS (2)
  1. ENOXAPARIN [Suspect]
     Indication: ATRIAL FIBRILLATION
     Route: 058
  2. WARFARIN [Suspect]
     Indication: ATRIAL FIBRILLATION
     Route: 048

REACTIONS (5)
  - Hemiparesis [None]
  - Disorientation [None]
  - Cerebral haemorrhage [None]
  - Intracranial pressure increased [None]
  - Intraventricular haemorrhage [None]
